FAERS Safety Report 4763537-1 (Version None)
Quarter: 2005Q3

REPORT INFORMATION
  Report Type: 
  Country: None (occurrence: None)
  Receive Date: 20050826
  Receipt Date: 20041130
  Transmission Date: 20060218
  Serious: Yes (Death, Other)
  Sender: FDA-Public Use
  Company Number: USA-2003-0011128

PATIENT
  Age: 29 Year
  Sex: Male
  Weight: 61.2 kg

DRUGS (3)
  1. OXYCONTIN [Suspect]
  2. LORTAB [Suspect]
  3. ALCOHOL (ETHANOL) [Suspect]

REACTIONS (2)
  - OVERDOSE [None]
  - POLYSUBSTANCE ABUSE [None]
